FAERS Safety Report 7767790-1 (Version None)
Quarter: 2011Q3

REPORT INFORMATION
  Report Type: 
  Country: None (occurrence: None)
  Receive Date: 20110922
  Receipt Date: 20110216
  Transmission Date: 20111222
  Serious: No
  Sender: FDA-Public Use
  Company Number: US-ASTRAZENECA-2011SE08925

PATIENT
  Age: 32 Year
  Sex: Female
  Weight: 131.5 kg

DRUGS (7)
  1. LODINE [Concomitant]
  2. SEROQUEL [Suspect]
     Indication: BIPOLAR DISORDER
     Route: 048
     Dates: start: 20060101, end: 20100101
  3. FLEXERIL [Concomitant]
  4. ADDERALL 5 [Concomitant]
  5. XANAX [Concomitant]
  6. SYNTHROID [Concomitant]
  7. SEROQUEL [Suspect]
     Route: 048
     Dates: start: 20100101

REACTIONS (3)
  - DRUG DOSE OMISSION [None]
  - INSOMNIA [None]
  - DISORIENTATION [None]
